FAERS Safety Report 6318871-0 (Version None)
Quarter: 2009Q3

REPORT INFORMATION
  Report Type: 
  Country: None (occurrence: None)
  Receive Date: 20090821
  Receipt Date: 20090811
  Transmission Date: 20100115
  Serious: Yes (Hospitalization)
  Sender: FDA-Public Use
  Company Number: US-ELI_LILLY_AND_COMPANY-US200903004259

PATIENT
  Sex: Male
  Weight: 204.8 kg

DRUGS (3)
  1. ZYPREXA [Suspect]
     Dosage: 1 D/F, UNK
     Dates: start: 19950101, end: 19990101
  2. WELLBUTRIN [Concomitant]
     Dates: start: 20030101
  3. PROZAC [Concomitant]

REACTIONS (8)
  - DIABETES MELLITUS [None]
  - DIABETIC COMA [None]
  - DIABETIC KETOACIDOSIS [None]
  - HYPERGLYCAEMIA [None]
  - INFECTION [None]
  - OBESITY [None]
  - PANCREATITIS [None]
  - WEIGHT INCREASED [None]
